FAERS Safety Report 8575323-5 (Version None)
Quarter: 2012Q3

REPORT INFORMATION
  Report Type: 
  Country: None (occurrence: None)
  Receive Date: 20120807
  Receipt Date: 20120801
  Transmission Date: 20120928
  Serious: Yes (Other)
  Sender: FDA-Public Use
  Company Number: PT-JNJFOC-20120801253

PATIENT
  Sex: Male

DRUGS (1)
  1. IMODIUM [Suspect]
     Indication: DIARRHOEA
     Route: 048
     Dates: start: 20120713

REACTIONS (1)
  - URINARY RETENTION [None]
